FAERS Safety Report 9963880 (Version 1)
Quarter: 2014Q1

REPORT INFORMATION
  Report Type: Report from Study
  Country: US (occurrence: US)
  Receive Date: 20140305
  Receipt Date: 20140305
  Transmission Date: 20141002
  Serious: No
  Sender: FDA-Public Use
  Company Number: US-ABBVIE-13P-163-1117534-00

PATIENT
  Age: 78 Year
  Sex: Female
  Weight: 72.64 kg

DRUGS (6)
  1. HUMIRA [Suspect]
     Indication: PSORIASIS
     Route: 058
     Dates: start: 2010, end: 201305
  2. CALCIUM [Concomitant]
     Indication: PRODUCT USED FOR UNKNOWN INDICATION
  3. MULTIVITAMIN [Concomitant]
     Indication: PRODUCT USED FOR UNKNOWN INDICATION
  4. REMERON [Concomitant]
     Indication: PRODUCT USED FOR UNKNOWN INDICATION
  5. CLONAZEPAM [Concomitant]
     Indication: PANIC ATTACK
  6. BUSPARIUM [Concomitant]
     Indication: DEPRESSION

REACTIONS (11)
  - Type 2 diabetes mellitus [Not Recovered/Not Resolved]
  - Colitis [Not Recovered/Not Resolved]
  - Localised infection [Recovering/Resolving]
  - White blood cell count increased [Unknown]
  - Scan abnormal [Not Recovered/Not Resolved]
  - Scan abnormal [Not Recovered/Not Resolved]
  - Scan abnormal [Not Recovered/Not Resolved]
  - Local swelling [Recovering/Resolving]
  - Gait disturbance [Recovering/Resolving]
  - Pain in extremity [Recovering/Resolving]
  - Cellulitis [Recovering/Resolving]
